FAERS Safety Report 10972099 (Version 4)
Quarter: 2016Q3

REPORT INFORMATION
  Report Type: Spontaneous
  Country: US (occurrence: US)
  Receive Date: 20150331
  Receipt Date: 20160721
  Transmission Date: 20161109
  Serious: Yes (Disabling)
  Sender: FDA-Public Use
  Company Number: US-009507513-1503USA015027

PATIENT
  Sex: Male
  Weight: 92.97 kg

DRUGS (1)
  1. PROPECIA [Suspect]
     Active Substance: FINASTERIDE
     Indication: ANDROGENETIC ALOPECIA
     Dosage: 1 MG, QD
     Route: 048
     Dates: start: 20070611, end: 201104

REACTIONS (9)
  - Muscle atrophy [Unknown]
  - Back injury [Unknown]
  - Sexual dysfunction [Not Recovered/Not Resolved]
  - Ligament rupture [Unknown]
  - Psoriasis [Unknown]
  - Erectile dysfunction [Not Recovered/Not Resolved]
  - Loss of libido [Unknown]
  - Cognitive disorder [Not Recovered/Not Resolved]
  - Hypogonadism [Unknown]

NARRATIVE: CASE EVENT DATE: 2011
